FAERS Safety Report 4523238-1 (Version None)
Quarter: 2004Q4

REPORT INFORMATION
  Report Type: 
  Country: None (occurrence: None)
  Receive Date: 20041208
  Receipt Date: 20041122
  Transmission Date: 20050328
  Serious: Yes (Life-Threatening, Hospitalization, Disabling)
  Sender: FDA-Public Use
  Company Number: 2004AP05072

PATIENT
  Age: 70 Year
  Sex: Male
  Weight: 68.4 kg

DRUGS (19)
  1. IRESSA [Suspect]
     Indication: NON-SMALL CELL LUNG CANCER
     Dosage: 250 MG DAILY PO
     Route: 048
     Dates: start: 20040809, end: 20040920
  2. PACLITAXEL [Suspect]
     Indication: NON-SMALL CELL LUNG CANCER
     Dates: start: 20040809, end: 20040913
  3. CARBOPLATIN [Suspect]
     Indication: NON-SMALL CELL LUNG CANCER
     Dates: start: 20040809, end: 20040913
  4. RADIOTHERAPY [Suspect]
     Indication: NON-SMALL CELL LUNG CANCER
  5. COVERSYL [Concomitant]
  6. ACETAMINOPHEN [Concomitant]
  7. DEXAMETHASONE [Concomitant]
  8. PROMETHAZINE [Concomitant]
  9. RANITIDINE [Concomitant]
  10. ONDANSETRON [Concomitant]
  11. MAXOLON [Concomitant]
  12. COLOXYL WITH SENNA [Concomitant]
  13. MOVICOL [Concomitant]
  14. BISACODYL [Concomitant]
  15. AQUEOUS CREAM [Concomitant]
  16. XYLOCAINE VISCOUS [Concomitant]
  17. BONJELA [Concomitant]
  18. SOMAC [Concomitant]
  19. ACETAMINOPHEN W/ CODEINE [Concomitant]

REACTIONS (12)
  - DEHYDRATION [None]
  - HYPERCALCAEMIA [None]
  - INFECTION [None]
  - LYMPHANGITIS [None]
  - MALIGNANT NEOPLASM PROGRESSION [None]
  - MALIGNANT PLEURAL EFFUSION [None]
  - NON-SMALL CELL LUNG CANCER [None]
  - OESOPHAGITIS [None]
  - PNEUMONIA [None]
  - PNEUMONITIS [None]
  - PYREXIA [None]
  - SEPSIS [None]
